FAERS Safety Report 11645028 (Version 1)
Quarter: 2015Q4

REPORT INFORMATION
  Report Type: Spontaneous
  Country: US (occurrence: US)
  Receive Date: 20151020
  Receipt Date: 20151020
  Transmission Date: 20160304
  Serious: No
  Sender: FDA-Public Use
  Company Number: US-HORIZON-ACT-0169-2015

PATIENT
  Age: 81 Year
  Sex: Female

DRUGS (1)
  1. ACTIMMUNE [Suspect]
     Active Substance: INTERFERON GAMMA-1B
     Indication: IDIOPATHIC PULMONARY FIBROSIS
     Dosage: 100 ?G THREE TIMES WEEKLY
     Dates: end: 20151014

REACTIONS (2)
  - Intentional product misuse [Unknown]
  - Off label use [Unknown]
